FAERS Safety Report 5914006-4 (Version None)
Quarter: 2008Q4

REPORT INFORMATION
  Report Type: 
  Country: None (occurrence: None)
  Receive Date: 20081007
  Receipt Date: 20081002
  Transmission Date: 20090506
  Serious: Yes (Death, Hospitalization, Other)
  Sender: FDA-Public Use
  Company Number: 2008-03691

PATIENT
  Age: 77 Year
  Sex: Male
  Weight: 64 kg

DRUGS (1)
  1. VELCADE [Suspect]
     Indication: MULTIPLE MYELOMA
     Dosage: 2.3 MG, INTRAVENOUS
     Route: 042
     Dates: start: 20080721, end: 20080728

REACTIONS (5)
  - CAROTID ARTERY STENOSIS [None]
  - HYPERGLYCAEMIA [None]
  - HYPOKALAEMIA [None]
  - HYPONATRAEMIA [None]
  - ISCHAEMIC STROKE [None]
